FAERS Safety Report 6816636-4 (Version None)
Quarter: 2010Q2

REPORT INFORMATION
  Report Type: 
  Country: None (occurrence: None)
  Receive Date: 20100630
  Receipt Date: 20100615
  Transmission Date: 20101027
  Serious: Yes (Hospitalization, Other)
  Sender: FDA-Public Use
  Company Number: 1000014716

PATIENT
  Age: 65 Year
  Sex: Female

DRUGS (1)
  1. CITALOPRAM HYDROBROMIDE [Suspect]
     Indication: DEPRESSION

REACTIONS (6)
  - AGITATION [None]
  - ANXIETY [None]
  - CHEST PAIN [None]
  - HYPONATRAEMIA [None]
  - PRESSURE OF SPEECH [None]
  - UNEVALUABLE EVENT [None]
